FAERS Safety Report 10302690 (Version 1)
Quarter: 2014Q3

REPORT INFORMATION
  Report Type: Spontaneous
  Country: US (occurrence: US)
  Receive Date: 20140714
  Receipt Date: 20140714
  Transmission Date: 20150326
  Serious: No
  Sender: FDA-Public Use
  Company Number: US-BAUSCH-BL-2013-004731

PATIENT
  Age: 58 Year
  Sex: Male

DRUGS (4)
  1. NEXIUM [Concomitant]
     Active Substance: ESOMEPRAZOLE MAGNESIUM
  2. BESIVANCE [Suspect]
     Active Substance: BESIFLOXACIN
     Indication: POSTOPERATIVE CARE
     Dosage: 1 DROP IN RIGHT EYE, TWO TIMES PER DAY
     Route: 047
     Dates: start: 20121115, end: 20121122
  3. GLYBURIDE. [Concomitant]
     Active Substance: GLYBURIDE
  4. BESIVANCE [Suspect]
     Active Substance: BESIFLOXACIN
     Indication: PREOPERATIVE CARE
     Dosage: 1 DROP IN LEFT EYE, TWO TIMES PER DAY
     Route: 047
     Dates: start: 20121115, end: 20121122

REACTIONS (4)
  - Corneal opacity [Not Recovered/Not Resolved]
  - Off label use [Recovered/Resolved]
  - Incision site inflammation [Not Recovered/Not Resolved]
  - Medication residue present [Not Recovered/Not Resolved]

NARRATIVE: CASE EVENT DATE: 20121115
